FAERS Safety Report 20508799 (Version 1)
Quarter: 2022Q1

REPORT INFORMATION
  Report Type: Spontaneous
  Country: JP (occurrence: JP)
  Receive Date: 20220223
  Receipt Date: 20220223
  Transmission Date: 20220423
  Serious: Yes (Other)
  Sender: FDA-Public Use
  Company Number: JP-Fresenius Kabi-FK202202062

PATIENT
  Age: 75 Year
  Sex: Male

DRUGS (2)
  1. HALOPERIDOL LACTATE [Suspect]
     Active Substance: HALOPERIDOL LACTATE
     Indication: Schizophrenia
     Route: 030
  2. LEVOMEPROMAZINE [Suspect]
     Active Substance: LEVOMEPROMAZINE
     Indication: Schizophrenia
     Route: 030

REACTIONS (4)
  - Atrioventricular block second degree [Recovered/Resolved]
  - Hypomagnesaemia [Recovered/Resolved]
  - Extrapyramidal disorder [Recovered/Resolved]
  - Bradyarrhythmia [Recovered/Resolved]
